FAERS Safety Report 5678060-X (Version None)
Quarter: 2008Q1

REPORT INFORMATION
  Report Type: 
  Country: None (occurrence: None)
  Receive Date: 20080319
  Receipt Date: 20080314
  Transmission Date: 20080703
  Serious: Yes (Hospitalization)
  Sender: FDA-Public Use
  Company Number: B0512046A

PATIENT
  Age: 73 Year
  Sex: Male

DRUGS (4)
  1. VALACICLOVIR HYDROCHLORID (FORMULATION UNKNOWN) (GENERIC)  (VALACYCLOV [Suspect]
     Indication: HERPES ZOSTER
     Dosage: 1 GRAM (S)/ THREE TIMES ER DAY / ORAL
     Route: 048
  2. NSAID (FORMULATION UNKNOWN)  (NSAID) [Suspect]
     Indication: HERPES ZOSTER
  3. ANGIOTENSIN II ANTAGONIST (FORMULATION UNKNOWN)(ANGIOTENSIN II ANTAGON [Suspect]
     Indication: CARDIAC DISORDER
  4. BETA-BLOCKE [Concomitant]

REACTIONS (4)
  - ANAEMIA [None]
  - DRUG LEVEL INCREASED [None]
  - HAEMODIALYSIS [None]
  - RENAL FAILURE ACUTE [None]
